FAERS Safety Report 4985385-X (Version None)
Quarter: 2006Q1

REPORT INFORMATION
  Report Type: 
  Country: None (occurrence: None)
  Receive Date: 20060309
  Receipt Date: 20051109
  Transmission Date: 20060701
  Serious: Yes (Other)
  Sender: FDA-Public Use
  Company Number: 424350

PATIENT
  Sex: 0

DRUGS (2)
  1. ACCUTANE [Suspect]
     Indication: ACNE
     Dosage: 40 MG DAILY  ORAL
     Route: 048
     Dates: start: 20050518, end: 20051027
  2. DEPO-PROVERA [Concomitant]

REACTIONS (1)
  - ABORTION INDUCED [None]
